FAERS Safety Report 21570170 (Version 1)
Quarter: 2022Q4

REPORT INFORMATION
  Report Type: Spontaneous
  Country: CL (occurrence: CL)
  Receive Date: 20221109
  Receipt Date: 20221109
  Transmission Date: 20230112
  Serious: Yes (Death, Other)
  Sender: FDA-Public Use
  Company Number: CL-SUN PHARMACEUTICAL INDUSTRIES LTD-2022RR-362875

PATIENT
  Age: 26 Year
  Sex: Female

DRUGS (6)
  1. IRINOTECAN [Suspect]
     Active Substance: IRINOTECAN
     Indication: Gastric cancer
     Dosage: UNK
     Route: 065
     Dates: start: 202101, end: 20210414
  2. CAPECITABINE [Suspect]
     Active Substance: CAPECITABINE
     Indication: Gastric cancer
     Dosage: CAPOX
     Route: 065
     Dates: start: 202002
  3. OXALIPLATIN [Suspect]
     Active Substance: OXALIPLATIN
     Indication: Gastric cancer
     Dosage: CAPOX
     Route: 065
     Dates: start: 202002
  4. PACLITAXEL [Suspect]
     Active Substance: PACLITAXEL
     Indication: Gastric cancer
     Dosage: UNK
     Route: 065
     Dates: start: 202008
  5. PEMBROLIZUMAB [Suspect]
     Active Substance: PEMBROLIZUMAB
     Indication: Gastric cancer
     Dosage: UNK
     Route: 065
     Dates: start: 202002
  6. RAMUCIRUMAB [Suspect]
     Active Substance: RAMUCIRUMAB
     Indication: Gastric cancer
     Dosage: UNK
     Route: 065
     Dates: start: 202008

REACTIONS (3)
  - Disease progression [Fatal]
  - Drug ineffective [Fatal]
  - Therapeutic product effect incomplete [Unknown]
